FAERS Safety Report 11787361 (Version 1)
Quarter: 2015Q4

REPORT INFORMATION
  Report Type: Spontaneous
  Country: US (occurrence: US)
  Receive Date: 20151130
  Receipt Date: 20151130
  Transmission Date: 20160305
  Serious: No
  Sender: FDA-Public Use
  Company Number: US-PFIZER INC-2015378917

PATIENT
  Age: 74 Year
  Sex: Male
  Weight: 109 kg

DRUGS (1)
  1. ADVIL ALLERGY SINUS [Suspect]
     Active Substance: CHLORPHENIRAMINE MALEATE\IBUPROFEN\PSEUDOEPHEDRINE HYDROCHLORIDE
     Indication: RHINORRHOEA
     Dosage: 1 DF, SINGLE [ONLY WHEN HIS NOSE IS RUNNING]
     Route: 048
     Dates: start: 20151102, end: 20151102

REACTIONS (4)
  - Product package associated injury [Unknown]
  - Product packaging issue [Unknown]
  - Poor quality drug administered [Unknown]
  - Product physical issue [Unknown]
